FAERS Safety Report 5411672-7 (Version None)
Quarter: 2007Q3

REPORT INFORMATION
  Report Type: 
  Country: None (occurrence: None)
  Receive Date: 20070810
  Receipt Date: 20070802
  Transmission Date: 20080115
  Serious: Yes (Death)
  Sender: FDA-Public Use
  Company Number: MX-MERCK-0708MEX00008

PATIENT
  Age: 68 Year
  Sex: Male

DRUGS (2)
  1. JANUVIA [Suspect]
     Route: 048
     Dates: start: 20070101, end: 20070101
  2. METFORMIN [Concomitant]
     Route: 048
     Dates: start: 20070101, end: 20070101

REACTIONS (1)
  - THROMBOCYTOPENIC PURPURA [None]
